FAERS Safety Report 10204076 (Version 1)
Quarter: 2014Q2

REPORT INFORMATION
  Report Type: Spontaneous
  Country: CA (occurrence: CA)
  Receive Date: 20140529
  Receipt Date: 20140529
  Transmission Date: 20141212
  Serious: Yes (Hospitalization, Other)
  Sender: FDA-Public Use
  Company Number: CA-AMGEN-CANSP2014038453

PATIENT
  Age: 82 Year
  Sex: Female

DRUGS (8)
  1. PROLIA [Suspect]
     Indication: OSTEOPOROSIS POSTMENOPAUSAL
     Dosage: 60 MG, Q6MO
     Route: 058
     Dates: start: 20131204
  2. PLAVIX [Concomitant]
     Dosage: UNK
     Route: 065
  3. METFORMIN [Concomitant]
     Dosage: UNK
     Route: 065
  4. DIAMICRON [Concomitant]
     Dosage: UNK
     Route: 065
  5. COVERSYL                           /00790702/ [Concomitant]
     Dosage: UNK
     Route: 065
  6. BISOPROLOL [Concomitant]
     Dosage: UNK
     Route: 065
  7. ATORVASTATIN [Concomitant]
     Dosage: UNK
     Route: 065
  8. EZETROL [Concomitant]
     Dosage: UNK
     Route: 065

REACTIONS (4)
  - Cerebrovascular accident [Not Recovered/Not Resolved]
  - Renal impairment [Not Recovered/Not Resolved]
  - Blood pressure increased [Recovering/Resolving]
  - Fatigue [Not Recovered/Not Resolved]
